FAERS Safety Report 16499557 (Version 2)
Quarter: 2022Q3

REPORT INFORMATION
  Report Type: Report from Study
  Country: DE (occurrence: DE)
  Receive Date: 20190701
  Receipt Date: 20220921
  Transmission Date: 20221027
  Serious: Yes (Hospitalization)
  Sender: FDA-Public Use
  Company Number: DE-BIOGEN-2019BI00757487

PATIENT
  Age: 39 Year
  Sex: Female
  Weight: 75 kg

DRUGS (1)
  1. TECFIDERA [Suspect]
     Active Substance: DIMETHYL FUMARATE
     Indication: Multiple sclerosis
     Dosage: MAINTENANCE DOSE
     Route: 050
     Dates: start: 20151031, end: 201903

REACTIONS (1)
  - Breast cancer female [Recovered/Resolved]

NARRATIVE: CASE EVENT DATE: 20190301
